FAERS Safety Report 7439346-1 (Version None)
Quarter: 2011Q2

REPORT INFORMATION
  Report Type: 
  Country: None (occurrence: None)
  Receive Date: 20110427
  Receipt Date: 20110418
  Transmission Date: 20111010
  Serious: Yes (Other)
  Sender: FDA-Public Use
  Company Number: US-ASTRAZENECA-2007UW05107

PATIENT
  Age: 33 Year
  Sex: Female
  Weight: 78.9 kg

DRUGS (13)
  1. LEXAPRO [Concomitant]
     Dosage: 20 MG 1.5 TAB Q AM
     Route: 048
     Dates: start: 20050829
  2. GEODON [Concomitant]
  3. TRAZODONE HCL [Concomitant]
     Indication: ANXIETY
     Dates: start: 20060101
  4. ABILIFY [Concomitant]
     Dates: start: 20040101, end: 20050101
  5. METHADONE [Concomitant]
     Indication: PAIN
     Dates: start: 20080101
  6. PHEN PHEN [Concomitant]
     Indication: WEIGHT CONTROL
  7. SEROQUEL [Suspect]
     Indication: DEPRESSION
     Dosage: 25 -300 MG
     Route: 048
     Dates: start: 20050829, end: 20060627
  8. XANAX [Concomitant]
     Indication: ANXIETY
     Dates: start: 20040101, end: 20060101
  9. XANAX [Concomitant]
     Dates: start: 20050829
  10. ZYPREXA [Concomitant]
     Indication: BIPOLAR DISORDER
     Dates: start: 20040101
  11. SEROQUEL [Suspect]
     Indication: BIPOLAR DISORDER
     Dosage: 25 -300 MG
     Route: 048
     Dates: start: 20050829, end: 20060627
  12. SEROQUEL [Suspect]
     Indication: ANXIETY
     Dosage: 25 -300 MG
     Route: 048
     Dates: start: 20050829, end: 20060627
  13. LITHIUM [Concomitant]
     Dates: start: 20060101

REACTIONS (5)
  - ARTHROPATHY [None]
  - GASTRIC DISORDER [None]
  - RHEUMATOID ARTHRITIS [None]
  - TYPE 2 DIABETES MELLITUS [None]
  - CARTILAGE INJURY [None]
